FAERS Safety Report 7014420-2 (Version None)
Quarter: 2010Q3

REPORT INFORMATION
  Report Type: 
  Country: None (occurrence: None)
  Receive Date: 20100927
  Receipt Date: 20100701
  Transmission Date: 20110219
  Serious: No
  Sender: FDA-Public Use
  Company Number: US-MYLANLABS-2010S1005355

PATIENT
  Age: 51 Year
  Sex: Male
  Weight: 104.33 kg

DRUGS (8)
  1. CARVEDILOL [Suspect]
     Indication: MYOCARDIAL INFARCTION
     Route: 048
     Dates: start: 20100131
  2. CARVEDILOL [Suspect]
     Indication: CARDIAC DISORDER
     Route: 048
     Dates: start: 20100131
  3. CARVEDILOL [Suspect]
     Route: 048
     Dates: end: 20100504
  4. CARVEDILOL [Suspect]
     Route: 048
     Dates: end: 20100504
  5. CRESTOR [Concomitant]
  6. PAXIL [Concomitant]
     Dosage: 20 - 30 MG DAILY
  7. ASPIRIN [Concomitant]
     Dates: start: 20100101
  8. EFFIENT [Concomitant]

REACTIONS (5)
  - FATIGUE [None]
  - FEELING ABNORMAL [None]
  - FEELING OF RELAXATION [None]
  - LETHARGY [None]
  - MEMORY IMPAIRMENT [None]
